FAERS Safety Report 7576941-3 (Version None)
Quarter: 2011Q2

REPORT INFORMATION
  Report Type: 
  Country: None (occurrence: None)
  Receive Date: 20110628
  Receipt Date: 20110620
  Transmission Date: 20111010
  Serious: No
  Sender: FDA-Public Use
  Company Number: US-PFIZER INC-2011137982

PATIENT
  Sex: Male

DRUGS (2)
  1. TORISEL [Suspect]
     Dosage: UNK
     Route: 042
  2. SUTENT [Suspect]
     Dosage: UNK
     Route: 048

REACTIONS (3)
  - RASH [None]
  - CHEST PAIN [None]
  - SNEEZING [None]
